FAERS Safety Report 9962500 (Version 1)
Quarter: 2014Q1

REPORT INFORMATION
  Report Type: Report from Study
  Country: US (occurrence: US)
  Receive Date: 20140305
  Receipt Date: 20140305
  Transmission Date: 20141002
  Serious: No
  Sender: FDA-Public Use
  Company Number: US-ABBVIE-13P-163-1115453-00

PATIENT
  Age: 44 Year
  Sex: Male
  Weight: 64.92 kg

DRUGS (7)
  1. HUMIRA [Suspect]
     Indication: COLITIS ULCERATIVE
     Route: 058
     Dates: start: 20130612, end: 20130612
  2. HUMIRA [Suspect]
     Route: 058
     Dates: start: 20130626, end: 20130626
  3. LIALDA [Concomitant]
     Indication: COLITIS ULCERATIVE
     Dates: start: 201306
  4. NEXIUM [Concomitant]
     Indication: GASTROOESOPHAGEAL REFLUX DISEASE
     Dates: start: 20130613
  5. HYDROCORTISONE [Concomitant]
     Indication: COLITIS ULCERATIVE
     Route: 054
     Dates: start: 20130613
  6. OMEPRAZOLE [Concomitant]
     Indication: PRODUCT USED FOR UNKNOWN INDICATION
     Dates: start: 20130613
  7. BALSALAZIDE DISODIUM [Concomitant]
     Indication: PRODUCT USED FOR UNKNOWN INDICATION

REACTIONS (1)
  - Nausea [Recovering/Resolving]
